FAERS Safety Report 24269908 (Version 1)
Quarter: 2024Q3

REPORT INFORMATION
  Report Type: Spontaneous
  Country: DE (occurrence: DE)
  Receive Date: 20240830
  Receipt Date: 20240830
  Transmission Date: 20241017
  Serious: Yes (Hospitalization)
  Sender: REGENERON
  Company Number: None

PATIENT
  Age: 78 Year
  Sex: Female

DRUGS (1)
  1. EYLEA [Suspect]
     Active Substance: AFLIBERCEPT
     Indication: Age-related macular degeneration
     Dosage: 0.05 ML, ONCE, SOLUTION FOR INJECTION, 40 MG/ML
     Route: 031
     Dates: start: 20240729, end: 20240729

REACTIONS (5)
  - Purulence [Not Recovered/Not Resolved]
  - Eye discharge [Not Recovered/Not Resolved]
  - Visual impairment [Not Recovered/Not Resolved]
  - Vision blurred [Not Recovered/Not Resolved]
  - Eye pain [Not Recovered/Not Resolved]

NARRATIVE: CASE EVENT DATE: 20240731
